FAERS Safety Report 6962221-3 (Version None)
Quarter: 2010Q3

REPORT INFORMATION
  Report Type: 
  Country: None (occurrence: None)
  Receive Date: 20100901
  Receipt Date: 20100901
  Transmission Date: 20110219
  Serious: Yes (Hospitalization)
  Sender: FDA-Public Use
  Company Number: None

PATIENT
  Age: 66 Year
  Sex: Male
  Weight: 93.4 kg

DRUGS (2)
  1. AMLODIPINE [Suspect]
     Indication: HYPERTENSION
     Dosage: 5 MG EVERY DAY PO
     Route: 048
     Dates: start: 20100519, end: 20100713
  2. HYDRALAZINE HCL [Suspect]
     Indication: HYPERTENSION
     Dosage: 10 MG TID PO
     Route: 048
     Dates: start: 20100521, end: 20100713

REACTIONS (2)
  - OEDEMA [None]
  - WEIGHT INCREASED [None]
